FAERS Safety Report 4450051-6 (Version None)
Quarter: 2004Q3

REPORT INFORMATION
  Report Type: 
  Country: None (occurrence: None)
  Receive Date: 20040915
  Receipt Date: 20040907
  Transmission Date: 20050211
  Serious: Yes (Hospitalization, Other)
  Sender: FDA-Public Use
  Company Number: FR-BRISTOL-MYERS SQUIBB COMPANY-12695631

PATIENT
  Age: 72 Year
  Sex: Female

DRUGS (10)
  1. COUMADIN [Suspect]
     Route: 048
     Dates: end: 20040816
  2. ASPIRIN [Interacting]
     Route: 048
     Dates: end: 20040816
  3. PRAVASTATIN [Concomitant]
  4. BISOPROLOL FUMARATE [Concomitant]
  5. MOPRAL [Concomitant]
  6. LEXOMIL [Concomitant]
  7. MAG 2 [Concomitant]
  8. TARDYFERON [Concomitant]
  9. DIANTALVIC [Concomitant]
  10. TIMOPTIC [Concomitant]

REACTIONS (9)
  - DRUG INTERACTION [None]
  - EPISTAXIS [None]
  - FALL [None]
  - HAEMATOMA [None]
  - INTERNATIONAL NORMALISED RATIO ABNORMAL [None]
  - MEDICATION ERROR [None]
  - OVERDOSE [None]
  - PROTHROMBIN TIME ABNORMAL [None]
  - SUBDURAL HAEMORRHAGE [None]
